FAERS Safety Report 7421463-3 (Version None)
Quarter: 2011Q2

REPORT INFORMATION
  Report Type: 
  Country: None (occurrence: None)
  Receive Date: 20110418
  Receipt Date: 20110212
  Transmission Date: 20111010
  Serious: Yes (Death, Other)
  Sender: FDA-Public Use
  Company Number: CN-CELGENEUS-035-20785-11033111

PATIENT

DRUGS (10)
  1. PREDNISONE [Concomitant]
     Indication: MULTIPLE MYELOMA
  2. VINCRISTINE [Concomitant]
     Indication: MULTIPLE MYELOMA
  3. DOXORUBICIN [Concomitant]
     Indication: MULTIPLE MYELOMA
  4. MELPHALAN [Concomitant]
     Indication: MULTIPLE MYELOMA
  5. THALIDOMIDE [Suspect]
     Dosage: 150 MILLIGRAM
     Route: 048
  6. THALIDOMIDE [Suspect]
     Indication: MULTIPLE MYELOMA
     Dosage: 100 MILLIGRAM
     Route: 048
  7. CARMUSTINE [Concomitant]
     Indication: MULTIPLE MYELOMA
  8. CYCLOPHOSPHAMIDE [Concomitant]
     Indication: MULTIPLE MYELOMA
  9. DEXAMETHASONE [Concomitant]
     Indication: MULTIPLE MYELOMA
  10. THALIDOMIDE [Suspect]
     Dosage: 200 MILLIGRAM
     Route: 048

REACTIONS (13)
  - NEUROPATHY PERIPHERAL [None]
  - SOMNOLENCE [None]
  - INFECTION [None]
  - LEUKOPENIA [None]
  - URTICARIA [None]
  - OEDEMA [None]
  - DRUG INEFFECTIVE [None]
  - RENAL IMPAIRMENT [None]
  - LIVER DISORDER [None]
  - RASH [None]
  - BONE MARROW FAILURE [None]
  - THROMBOCYTOPENIA [None]
  - CONSTIPATION [None]
